FAERS Safety Report 5615402-5 (Version None)
Quarter: 2008Q1

REPORT INFORMATION
  Report Type: 
  Country: None (occurrence: None)
  Receive Date: 20080206
  Receipt Date: 20080128
  Transmission Date: 20080703
  Serious: Yes (Hospitalization)
  Sender: FDA-Public Use
  Company Number: JP-ALLERGAN-0801191US

PATIENT
  Sex: Female

DRUGS (8)
  1. BOTULINUM TOXIN TYPE A - GENERAL [Suspect]
     Indication: TORTICOLLIS
     Dosage: 60 UNITS, SINGLE
     Route: 030
     Dates: start: 20061213, end: 20061213
  2. BOTULINUM TOXIN TYPE A - GENERAL [Suspect]
     Dosage: 80 UNITS, SINGLE
     Route: 030
     Dates: start: 20070327, end: 20070327
  3. BOTULINUM TOXIN TYPE A - GENERAL [Suspect]
     Dosage: 95 UNITS, SINGLE
     Route: 030
     Dates: start: 20070620, end: 20070620
  4. BOTULINUM TOXIN TYPE A - GENERAL [Suspect]
     Dosage: 117.5 UNITS, SINGLE
     Route: 030
     Dates: start: 20070925, end: 20070925
  5. VALPROATE SODIUM [Concomitant]
     Indication: CONVULSION
     Dosage: 400 MG, QD
     Route: 048
  6. DIAZEPAM [Concomitant]
     Indication: INSOMNIA
     Dosage: 5 MG, QD
     Route: 048
     Dates: end: 20001112
  7. DIAZEPAM [Concomitant]
     Dosage: 3 MG, QD
     Route: 048
     Dates: start: 20001113
  8. CARBAMAZEPINE [Concomitant]
     Indication: CONVULSION
     Dosage: 90 MG, QD
     Route: 048

REACTIONS (2)
  - BRONCHITIS [None]
  - PNEUMONIA [None]
